FAERS Safety Report 4830522-0 (Version None)
Quarter: 2005Q4

REPORT INFORMATION
  Report Type: 
  Country: None (occurrence: None)
  Receive Date: 20051115
  Receipt Date: 20051110
  Transmission Date: 20060501
  Serious: Yes (Hospitalization)
  Sender: FDA-Public Use
  Company Number: TCI2005A04573

PATIENT
  Sex: Male

DRUGS (3)
  1. LEUPROLIDE ACETATE [Suspect]
     Indication: PROSTATE CANCER
     Dosage: 3.75 MG (3.75 MG, 1 IN 28 D) SUBCUTANEOUS
     Route: 058
     Dates: start: 20051018
  2. CHLORMADINONE ACETATE TAB [Suspect]
     Dosage: PER ORAL
     Route: 048
  3. TAMSULOSIN HCL [Suspect]
     Dosage: PER ORAL
     Route: 048

REACTIONS (1)
  - JAUNDICE [None]
